FAERS Safety Report 9825818 (Version 4)
Quarter: 2014Q1

REPORT INFORMATION
  Report Type: Spontaneous
  Country: JP (occurrence: JP)
  Receive Date: 20140117
  Receipt Date: 20140326
  Transmission Date: 20141002
  Serious: Yes (Other)
  Sender: FDA-Public Use
  Company Number: JP-ABBVIE-14P-087-1188086-00

PATIENT
  Age: 47 Year
  Sex: Female

DRUGS (3)
  1. HUMIRA [Suspect]
     Indication: CROHN^S DISEASE
     Route: 058
     Dates: start: 20131227, end: 20131227
  2. MESALAZINE [Concomitant]
     Indication: CROHN^S DISEASE
     Route: 048
  3. WARFARIN POTASSIUM [Concomitant]
     Indication: DEEP VEIN THROMBOSIS
     Route: 048

REACTIONS (1)
  - Neutropenia [Recovered/Resolved]
